FAERS Safety Report 25405030 (Version 1)
Quarter: 2025Q2

REPORT INFORMATION
  Report Type: Spontaneous
  Country: RU (occurrence: RU)
  Receive Date: 20250606
  Receipt Date: 20250606
  Transmission Date: 20250716
  Serious: Yes (Death, Hospitalization, Other)
  Sender: RANBAXY
  Company Number: RU-SUN PHARMACEUTICAL INDUSTRIES LTD-2025R1-510392

PATIENT
  Age: 62 Year
  Sex: Male

DRUGS (1)
  1. LIDOCAINE [Suspect]
     Active Substance: LIDOCAINE
     Indication: Benign prostatic hyperplasia
     Route: 065

REACTIONS (4)
  - Anaphylactic shock [Fatal]
  - Seizure [Fatal]
  - Loss of consciousness [Fatal]
  - Foaming at mouth [Fatal]
